FAERS Safety Report 8070419-9 (Version None)
Quarter: 2012Q1

REPORT INFORMATION
  Report Type: 
  Country: None (occurrence: None)
  Receive Date: 20120125
  Receipt Date: 20120117
  Transmission Date: 20120608
  Serious: Yes (Life-Threatening, Hospitalization, Other)
  Sender: FDA-Public Use
  Company Number: DE-JNJFOC-20111101289

PATIENT
  Sex: Male
  Weight: 88 kg

DRUGS (2)
  1. PREDNISOLONE [Concomitant]
     Route: 065
  2. ZYTIGA [Suspect]
     Indication: PROSTATE CANCER
     Route: 048
     Dates: start: 20110901, end: 20111017

REACTIONS (2)
  - MYOCARDIAL INFARCTION [None]
  - GAMMA-GLUTAMYLTRANSFERASE INCREASED [None]
